FAERS Safety Report 4542343-7 (Version None)
Quarter: 2004Q4

REPORT INFORMATION
  Report Type: 
  Country: None (occurrence: None)
  Receive Date: 20041230
  Receipt Date: 20041223
  Transmission Date: 20050328
  Serious: Yes (Other)
  Sender: FDA-Public Use
  Company Number: US-BRISTOL-MYERS SQUIBB COMPANY-12805123

PATIENT
  Age: 64 Year
  Sex: Male
  Weight: 108 kg

DRUGS (4)
  1. CETUXIMAB [Suspect]
     Indication: COLORECTAL CANCER
     Dosage: 11-AUG-04 (START DATE). TOTAL DOSE ADMIN. THIS COURSE=2160MG.  2 COURSES TO DATE. DISC'T 17-NOV.
     Route: 042
     Dates: start: 20041027, end: 20041027
  2. FLUOROURACIL [Suspect]
     Indication: COLORECTAL CANCER
     Dosage: INITIATED: 11-AUG-04 (BOLUS 400MG/M2) CIVI 2400MG/M2 OVER 46H. TOTAL DOSE ADMIN THIS COURSE=12130MG.
     Route: 042
  3. LEUCOVORIN CALCIUM [Suspect]
     Indication: COLORECTAL CANCER
     Dosage: INIT'D 11-AUG-04. ADMIN ON DAY 1 OF WKS (1,3,5,7). TOTAL DOSE ADMIN THIS COURSE=1730MG. 2 COURSES.
     Route: 042
  4. IRINOTECAN [Suspect]
     Indication: COLORECTAL CANCER
     Dosage: 11-AUG-04 (INIT'D). ADMIN ON DAY 1 OF WKS 1,3,5,7. TOTAL DOSE ADMIN. THIS COURSE=780MG. 2 COURSES.
     Route: 042

REACTIONS (19)
  - ASTHENIA [None]
  - BLISTER [None]
  - DIARRHOEA [None]
  - DRUG TOXICITY [None]
  - DYSPNOEA [None]
  - EMBOLISM [None]
  - FUNGAL INFECTION [None]
  - HAEMORRHAGE [None]
  - IMPLANT SITE INFECTION [None]
  - MUCOSAL INFLAMMATION [None]
  - NAIL DISORDER [None]
  - PAIN IN EXTREMITY [None]
  - PERFORMANCE STATUS DECREASED [None]
  - PULMONARY EMBOLISM [None]
  - PYREXIA [None]
  - RASH [None]
  - SKIN TOXICITY [None]
  - STOMATITIS [None]
  - THROMBOSIS [None]
